FAERS Safety Report 10227212 (Version 1)
Quarter: 2014Q2

REPORT INFORMATION
  Report Type: Spontaneous
  Country: US (occurrence: US)
  Receive Date: 20140610
  Receipt Date: 20140610
  Transmission Date: 20141212
  Serious: Yes (Hospitalization)
  Sender: FDA-Public Use
  Company Number: US-SA-2014SA071612

PATIENT
  Age: 72 Year
  Sex: Male

DRUGS (2)
  1. LANTUS SOLOSTAR [Suspect]
     Indication: DIABETES MELLITUS
     Dosage: DOSE:40 UNIT(S)
     Route: 065
  2. SOLOSTAR [Concomitant]
     Indication: DEVICE THERAPY

REACTIONS (4)
  - Toe amputation [Unknown]
  - Osteomyelitis [Not Recovered/Not Resolved]
  - Blister [Not Recovered/Not Resolved]
  - Staphylococcal infection [Not Recovered/Not Resolved]
